FAERS Safety Report 4364926-X (Version None)
Quarter: 2004Q2

REPORT INFORMATION
  Report Type: 
  Country: None (occurrence: None)
  Receive Date: 20040524
  Receipt Date: 20011030
  Transmission Date: 20050107
  Serious: Yes (Other)
  Sender: FDA-Public Use
  Company Number: PERIO-2001-0344

PATIENT
  Sex: Male

DRUGS (2)
  1. PERIOSTAT [Suspect]
     Indication: PERIODONTAL DISEASE
     Dosage: 20 MG, BID, PER ORAL
     Route: 048
     Dates: start: 20010320
  2. PERIOSTAT [Suspect]
     Indication: PERIODONTITIS
     Dosage: 20 MG, BID, PER ORAL
     Route: 048
     Dates: start: 20010320

REACTIONS (1)
  - RENAL IMPAIRMENT [None]
